FAERS Safety Report 4806523-5 (Version None)
Quarter: 2005Q4

REPORT INFORMATION
  Report Type: 
  Country: None (occurrence: None)
  Receive Date: 20051021
  Receipt Date: 20051007
  Transmission Date: 20060501
  Serious: Yes (Other)
  Sender: FDA-Public Use
  Company Number: HQWYE944610OCT05

PATIENT
  Sex: Female

DRUGS (15)
  1. ENBREL [Suspect]
     Indication: ARTHRITIS
     Dosage: 50 MG UNSPECIFIED FREQUENCY
     Dates: start: 20040401
  2. DICLOFENAC SODIUM [Concomitant]
     Dosage: UNKNOWN
  3. FISH OIL [Concomitant]
     Dosage: UNKNOWN
  4. ACETAMINOPHEN [Concomitant]
     Dosage: UNKNOWN
  5. KENALOG [Concomitant]
     Dosage: UNKNOWN
  6. OMEPRAZOLE [Concomitant]
     Dosage: UNKNOWN
  7. THYROXINE SODIUM [Concomitant]
     Dosage: UNKNOWN
  8. VALPROATE SODIUM [Concomitant]
     Dosage: UNKNOWN
  9. CARBAMAZEPINE [Concomitant]
     Dosage: UNKNOWN
  10. ATORVASTATIN [Concomitant]
     Dosage: UNKNOWN
  11. ACETASALICYLIC ACID [Concomitant]
     Dosage: UNKNOWN
  12. ZINC [Concomitant]
     Dosage: UNKNOWN
  13. CLOPIDOGREL [Concomitant]
     Dosage: UNKNOWN
  14. GARLIC [Concomitant]
     Dosage: UNKNOWN
  15. RAMIPRIL [Concomitant]
     Dosage: UNKNOWN

REACTIONS (1)
  - CONVULSION [None]
